FAERS Safety Report 12141106 (Version 4)
Quarter: 2017Q3

REPORT INFORMATION
  Report Type: Spontaneous
  Country: BR (occurrence: BR)
  Receive Date: 20160303
  Receipt Date: 20170928
  Transmission Date: 20171127
  Serious: Yes (Other)
  Sender: FDA-Public Use
  Company Number: BR-JNJFOC-20160226197

PATIENT
  Sex: Female
  Weight: 70 kg

DRUGS (2)
  1. SIMPONI [Suspect]
     Active Substance: GOLIMUMAB
     Indication: RHEUMATOID ARTHRITIS
     Route: 058
     Dates: start: 20150215
  2. VEROTINA [Concomitant]
     Route: 065

REACTIONS (5)
  - Osteoarthritis [Not Recovered/Not Resolved]
  - Chronic leukaemia [Not Recovered/Not Resolved]
  - Muscular weakness [Unknown]
  - Arthritis [Not Recovered/Not Resolved]
  - Chills [Unknown]
